FAERS Safety Report 22340287 (Version 1)
Quarter: 2023Q2

REPORT INFORMATION
  Report Type: Spontaneous
  Country: CA (occurrence: CA)
  Receive Date: 20230518
  Receipt Date: 20230518
  Transmission Date: 20230722
  Serious: Yes (Death, Other)
  Sender: FDA-Public Use
  Company Number: CA-FreseniusKabi-FK202306170

PATIENT
  Age: 67 Year
  Sex: Female
  Weight: 73 kg

DRUGS (32)
  1. DIPHENHYDRAMINE HYDROCHLORIDE [Suspect]
     Active Substance: DIPHENHYDRAMINE HYDROCHLORIDE
     Indication: Premedication
     Route: 065
  2. DOXORUBICIN HYDROCHLORIDE [Suspect]
     Active Substance: DOXORUBICIN HYDROCHLORIDE
     Indication: Product used for unknown indication
     Route: 065
  3. SACITUZUMAB GOVITECAN [Suspect]
     Active Substance: SACITUZUMAB GOVITECAN
     Indication: Triple negative breast cancer
     Route: 042
  4. SACITUZUMAB GOVITECAN [Suspect]
     Active Substance: SACITUZUMAB GOVITECAN
     Route: 042
  5. SACITUZUMAB GOVITECAN [Suspect]
     Active Substance: SACITUZUMAB GOVITECAN
     Route: 042
  6. SACITUZUMAB GOVITECAN [Suspect]
     Active Substance: SACITUZUMAB GOVITECAN
     Route: 042
  7. SACITUZUMAB GOVITECAN [Suspect]
     Active Substance: SACITUZUMAB GOVITECAN
     Route: 042
  8. XELODA [Suspect]
     Active Substance: CAPECITABINE
     Indication: Product used for unknown indication
     Route: 065
  9. ACETAMINOPHEN [Concomitant]
     Active Substance: ACETAMINOPHEN
     Indication: Product used for unknown indication
  10. ACETAMINOPHEN [Concomitant]
     Active Substance: ACETAMINOPHEN
  11. ACETAMINOPHEN [Concomitant]
     Active Substance: ACETAMINOPHEN
  12. ACETAMINOPHEN [Concomitant]
     Active Substance: ACETAMINOPHEN
  13. ACETAMINOPHEN [Concomitant]
     Active Substance: ACETAMINOPHEN
  14. ACETAMINOPHEN [Concomitant]
     Active Substance: ACETAMINOPHEN
  15. DEXAMETHASONE [Concomitant]
     Active Substance: DEXAMETHASONE
     Indication: Product used for unknown indication
  16. DEXAMETHASONE [Concomitant]
     Active Substance: DEXAMETHASONE
  17. DEXAMETHASONE [Concomitant]
     Active Substance: DEXAMETHASONE
  18. DEXAMETHASONE [Concomitant]
     Active Substance: DEXAMETHASONE
  19. DEXAMETHASONE [Concomitant]
     Active Substance: DEXAMETHASONE
  20. DEXAMETHASONE [Concomitant]
     Active Substance: DEXAMETHASONE
  21. DEXAMETHASONE [Concomitant]
     Active Substance: DEXAMETHASONE
  22. DEXAMETHASONE [Concomitant]
     Active Substance: DEXAMETHASONE
  23. DEXAMETHASONE [Concomitant]
     Active Substance: DEXAMETHASONE
  24. DEXAMETHASONE [Concomitant]
     Active Substance: DEXAMETHASONE
  25. DEXAMETHASONE [Concomitant]
     Active Substance: DEXAMETHASONE
  26. ELASOMERAN [Concomitant]
     Active Substance: ELASOMERAN
     Indication: Product used for unknown indication
     Route: 065
  27. TYLENOL [Concomitant]
     Active Substance: ACETAMINOPHEN
     Indication: Product used for unknown indication
  28. TYLENOL [Concomitant]
     Active Substance: ACETAMINOPHEN
  29. TYLENOL [Concomitant]
     Active Substance: ACETAMINOPHEN
  30. TYLENOL [Concomitant]
     Active Substance: ACETAMINOPHEN
  31. TYLENOL [Concomitant]
     Active Substance: ACETAMINOPHEN
  32. TYLENOL [Concomitant]
     Active Substance: ACETAMINOPHEN

REACTIONS (39)
  - Abdominal pain [Fatal]
  - Abdominal pain upper [Fatal]
  - Asthenia [Fatal]
  - Blood pressure systolic abnormal [Fatal]
  - Constipation [Fatal]
  - Death [Fatal]
  - Diarrhoea [Fatal]
  - Diarrhoea [Fatal]
  - Discomfort [Fatal]
  - Dizziness [Fatal]
  - Dysphagia [Fatal]
  - Dyspnoea [Fatal]
  - Eating disorder [Fatal]
  - Energy increased [Fatal]
  - Face injury [Fatal]
  - Fatigue [Fatal]
  - Feeling jittery [Fatal]
  - Formication [Fatal]
  - Gait disturbance [Fatal]
  - Haemoglobin abnormal [Fatal]
  - Haemoglobin decreased [Fatal]
  - Heart rate increased [Fatal]
  - Hypersensitivity [Fatal]
  - Hypotension [Fatal]
  - Inappropriate schedule of product administration [Fatal]
  - Lymphoedema [Fatal]
  - Mass [Fatal]
  - Pain [Fatal]
  - Peripheral swelling [Fatal]
  - Rash [Fatal]
  - Red blood cell count decreased [Fatal]
  - Somnolence [Fatal]
  - Speech disorder [Fatal]
  - Stress [Fatal]
  - Therapeutic response unexpected [Fatal]
  - Tooth fracture [Fatal]
  - Weight decreased [Fatal]
  - Weight fluctuation [Fatal]
  - Weight increased [Fatal]
